FAERS Safety Report 18835334 (Version 1)
Quarter: 2021Q1

REPORT INFORMATION
  Report Type: Spontaneous
  Country: US (occurrence: US)
  Receive Date: 20210203
  Receipt Date: 20210203
  Transmission Date: 20210419
  Serious: No
  Sender: FDA-Public Use
  Company Number: US-ALLERGAN-2019607US

PATIENT
  Age: 39 Year
  Sex: Female

DRUGS (4)
  1. BOTOX COSMETIC [Suspect]
     Active Substance: ONABOTULINUMTOXINA
     Indication: SKIN WRINKLING
     Dosage: 20 UNITS, SINGLE
     Dates: start: 20200508, end: 20200508
  2. BOTOX COSMETIC [Suspect]
     Active Substance: ONABOTULINUMTOXINA
     Indication: SKIN WRINKLING
     Dosage: 20 UNITS
     Dates: start: 20200508, end: 20200508
  3. METHOTREXATE. [Concomitant]
     Active Substance: METHOTREXATE
  4. BOTOX COSMETIC [Suspect]
     Active Substance: ONABOTULINUMTOXINA
     Indication: SKIN WRINKLING
     Dosage: 10 UNITS
     Dates: start: 20200508, end: 20200508

REACTIONS (1)
  - Headache [Recovered/Resolved]
